FAERS Safety Report 5651953-5 (Version None)
Quarter: 2008Q1

REPORT INFORMATION
  Report Type: 
  Country: None (occurrence: None)
  Receive Date: 20080305
  Receipt Date: 20080222
  Transmission Date: 20080703
  Serious: Yes (Hospitalization, Other)
  Sender: FDA-Public Use
  Company Number: US-PFIZER INC-2008014995

PATIENT
  Sex: Female
  Weight: 54.5 kg

DRUGS (3)
  1. CHANTIX [Suspect]
     Indication: SMOKING CESSATION THERAPY
     Route: 048
     Dates: start: 20070501, end: 20070101
  2. BENICAR [Concomitant]
  3. POTASSIUM CHLORIDE [Concomitant]

REACTIONS (5)
  - CONFUSIONAL STATE [None]
  - INSOMNIA [None]
  - MALAISE [None]
  - PNEUMONIA [None]
  - TREMOR [None]
